FAERS Safety Report 17245569 (Version 1)
Quarter: 2020Q1

REPORT INFORMATION
  Report Type: Spontaneous
  Country: US (occurrence: US)
  Receive Date: 20200108
  Receipt Date: 20200108
  Transmission Date: 20200409
  Serious: No
  Sender: FDA-Public Use
  Company Number: US-JNJFOC-20191243332

PATIENT
  Age: 10 Month
  Sex: Female

DRUGS (2)
  1. CHILDRENS TYLENOL [Suspect]
     Active Substance: ACETAMINOPHEN
     Indication: PAIN
  2. CHILDRENS TYLENOL [Suspect]
     Active Substance: ACETAMINOPHEN
     Indication: PYREXIA
     Dosage: 3.75 ML EVERY 8-9 HOURS
     Route: 048
     Dates: start: 20191220

REACTIONS (2)
  - Restlessness [Unknown]
  - Initial insomnia [Unknown]

NARRATIVE: CASE EVENT DATE: 20191223
